FAERS Safety Report 6301334-6 (Version None)
Quarter: 2009Q3

REPORT INFORMATION
  Report Type: 
  Country: None (occurrence: None)
  Receive Date: 20090807
  Receipt Date: 20090728
  Transmission Date: 20100115
  Serious: Yes (Hospitalization)
  Sender: FDA-Public Use
  Company Number: US-PFIZER INC-2009197269

PATIENT
  Sex: Male
  Weight: 14 kg

DRUGS (16)
  1. VORICONAZOLE [Suspect]
     Dosage: 79 MG, 2X/DAY
     Route: 042
     Dates: start: 20090123, end: 20090129
  2. VORICONAZOLE [Suspect]
     Dosage: 87 MG, 2X/DAY
     Route: 042
     Dates: start: 20090130, end: 20090215
  3. VORICONAZOLE [Suspect]
     Dosage: 90 MG, 2X/DAY
     Route: 048
     Dates: start: 20090216, end: 20090313
  4. PERIDEX [Concomitant]
     Dosage: UNK
     Route: 048
     Dates: start: 20090101
  5. CYCLOSPORINE [Concomitant]
     Dosage: UNK
     Route: 048
     Dates: start: 20090201
  6. MICAFUNGIN [Concomitant]
     Dosage: UNK
     Route: 042
     Dates: start: 20090301
  7. BACTRIM [Concomitant]
     Dosage: UNK
     Route: 048
     Dates: start: 20090303
  8. IMMUNOGLOBULIN HUMAN NORMAL [Concomitant]
     Dosage: UNK
     Route: 042
     Dates: start: 20090101
  9. ISRADIPINE [Concomitant]
     Dosage: UNK
     Route: 048
     Dates: start: 20090101
  10. NEUPOGEN [Concomitant]
     Dosage: UNK
     Route: 042
     Dates: start: 20090101
  11. TPN [Concomitant]
     Dosage: UNK
     Route: 042
     Dates: start: 20090305
  12. VALTREX [Concomitant]
     Dosage: UNK
     Route: 048
     Dates: start: 20090101
  13. TYLENOL (CAPLET) [Concomitant]
     Dosage: UNK
     Route: 048
     Dates: start: 20090101
  14. BENADRYL [Concomitant]
     Dosage: UNK
     Route: 048
     Dates: start: 20090101
  15. ORAPRED [Concomitant]
  16. ZOFRAN [Concomitant]
     Dosage: UNK
     Route: 048
     Dates: start: 20090201

REACTIONS (5)
  - CATHETER REMOVAL [None]
  - CELLULITIS [None]
  - CYTOMEGALOVIRUS INFECTION [None]
  - GRAFT VERSUS HOST DISEASE [None]
  - HEPATIC ENZYME INCREASED [None]
